FAERS Safety Report 19004409 (Version 2)
Quarter: 2021Q2

REPORT INFORMATION
  Report Type: Spontaneous
  Country: US (occurrence: US)
  Receive Date: 20210312
  Receipt Date: 20210402
  Transmission Date: 20210717
  Serious: No
  Sender: FDA-Public Use
  Company Number: US-ALXN-A202103205

PATIENT

DRUGS (1)
  1. SOLIRIS [Suspect]
     Active Substance: ECULIZUMAB
     Indication: NEUROMYELITIS OPTICA SPECTRUM DISORDER
     Dosage: UNK UNK, Q2W
     Route: 065

REACTIONS (8)
  - Feeling abnormal [Unknown]
  - Central nervous system lesion [Not Recovered/Not Resolved]
  - Heart rate increased [Unknown]
  - Dyspnoea exertional [Unknown]
  - Paraesthesia [Unknown]
  - Neuralgia [Unknown]
  - Hypoaesthesia [Unknown]
  - Muscular weakness [Unknown]
